FAERS Safety Report 11148916 (Version 1)
Quarter: 2015Q2

REPORT INFORMATION
  Report Type: Spontaneous
  Country: CA (occurrence: None)
  Receive Date: 20150527
  Receipt Date: 20150527
  Transmission Date: 20150821
  Serious: Yes (Hospitalization)
  Sender: FDA-Public Use
  Company Number: FK201502399

PATIENT
  Age: 61 Year
  Sex: Female

DRUGS (4)
  1. DIPHENHYDRAMINE (DIPHENHYDRAMINE) [Concomitant]
     Active Substance: DIPHENHYDRAMINE
  2. GEMCITABINE [Suspect]
     Active Substance: GEMCITABINE\GEMCITABINE HYDROCHLORIDE
     Indication: DIFFUSE LARGE B-CELL LYMPHOMA
     Dosage: NOT OTHERWISE SPECIFIED
     Route: 042
  3. DEXAMETHASONE (DEXAMETHASONE) [Concomitant]
     Active Substance: DEXAMETHASONE
  4. RITUXIMAB (RITUXIMAB) (RITUXIMAB) [Suspect]
     Active Substance: RITUXIMAB
     Indication: DIFFUSE LARGE B-CELL LYMPHOMA
     Dosage: NOT OTHERWISE SPECIFIED
     Route: 042

REACTIONS (1)
  - Arteriospasm coronary [None]
